FAERS Safety Report 17575744 (Version 1)
Quarter: 2020Q1

REPORT INFORMATION
  Report Type: Spontaneous
  Country: ES (occurrence: ES)
  Receive Date: 20200324
  Receipt Date: 20200324
  Transmission Date: 20200409
  Serious: Yes (Other)
  Sender: FDA-Public Use
  Company Number: ES-PFIZER INC-2020119943

PATIENT
  Age: 70 Year
  Sex: Female

DRUGS (6)
  1. GABAPENTIN. [Suspect]
     Active Substance: GABAPENTIN
     Indication: MERALGIA PARAESTHETICA
     Dosage: 600 MG, 3X/DAY (EVERY 8 HOURS,1 TABLET AT BREAKFAST, LUNCH AND DINNER)
     Dates: start: 20200127, end: 20200212
  2. LORAZEPAM CINFA [Concomitant]
     Active Substance: LORAZEPAM
     Dosage: UNK
     Dates: start: 20161214
  3. HIDROFEROL [Concomitant]
     Active Substance: CALCIFEDIOL
     Dosage: UNK
     Dates: start: 20171103
  4. ESOMEPRAZOL [ESOMEPRAZOLE] [Concomitant]
     Active Substance: ESOMEPRAZOLE
     Dosage: UNK
     Dates: start: 20200115
  5. EMCONCOR COR [Concomitant]
     Active Substance: BISOPROLOL
     Dosage: UNK
     Dates: start: 20180508
  6. EFFERALGAN PARACETAMOL [Concomitant]
     Dosage: UNK
     Dates: start: 20191111

REACTIONS (3)
  - Drug intolerance [Unknown]
  - Dizziness [Recovered/Resolved]
  - Swelling face [Recovered/Resolved]

NARRATIVE: CASE EVENT DATE: 20200131
